FAERS Safety Report 16903865 (Version 1)
Quarter: 2019Q4

REPORT INFORMATION
  Report Type: Other
  Country: CA (occurrence: CA)
  Receive Date: 20191010
  Receipt Date: 20191010
  Transmission Date: 20200122
  Serious: Yes (Other)
  Sender: FDA-Public Use
  Company Number: CA-ASTELLAS-2019US038952

PATIENT
  Age: 79 Year
  Sex: Female

DRUGS (1)
  1. TACROLIMUS. [Suspect]
     Active Substance: TACROLIMUS
     Indication: MYASTHENIA GRAVIS
     Route: 065

REACTIONS (5)
  - Skin cancer [Unknown]
  - Product use in unapproved indication [Unknown]
  - Skin mass [Unknown]
  - Pain [Unknown]
  - Skin haemorrhage [Unknown]
